FAERS Safety Report 9478436 (Version 1)
Quarter: 2013Q3

REPORT INFORMATION
  Report Type: Spontaneous
  Country: BR (occurrence: BR)
  Receive Date: 20130827
  Receipt Date: 20130827
  Transmission Date: 20140515
  Serious: Yes (Other)
  Sender: FDA-Public Use
  Company Number: BR-ELI_LILLY_AND_COMPANY-BR201308004690

PATIENT
  Age: 64 Year
  Sex: Female
  Weight: 79 kg

DRUGS (10)
  1. CYMBALTA [Suspect]
     Indication: FIBROMYALGIA
     Dosage: 60 MG, EACH MORNING
     Route: 048
     Dates: start: 201210, end: 201211
  2. CYMBALTA [Suspect]
     Indication: PAIN
  3. TRAMAL [Suspect]
     Indication: PAIN
     Dosage: UNK, PRN
     Route: 065
  4. DIOVAN [Suspect]
     Indication: BLOOD PRESSURE
     Dosage: UNK, UNKNOWN
     Route: 065
  5. GLIFAGE [Concomitant]
     Indication: DIABETES MELLITUS
     Dosage: 1 DF, BID
     Route: 065
     Dates: start: 2011
  6. LIPITOR [Concomitant]
     Indication: BLOOD CHOLESTEROL INCREASED
     Dosage: 10 MG, EACH EVENING
     Route: 065
  7. RIVOTRIL [Concomitant]
     Indication: INSOMNIA
     Dosage: UNK, EACH EVENING
     Route: 065
  8. VITAMINA D [Concomitant]
     Indication: OSTEOPENIA
     Dosage: UNK, UNKNOWN
     Route: 065
     Dates: start: 201304
  9. TYLENOL                            /00020001/ [Concomitant]
     Indication: PAIN
     Dosage: UNK, PRN
     Route: 065
  10. DORFLEX [Concomitant]
     Indication: PAIN
     Dosage: UNK, PRN
     Route: 065

REACTIONS (8)
  - Spinal fracture [Unknown]
  - Balance disorder [Recovered/Resolved]
  - Impaired reasoning [Recovered/Resolved]
  - Dysstasia [Recovered/Resolved]
  - Feeling drunk [Recovered/Resolved]
  - Fatigue [Recovered/Resolved]
  - Malaise [Recovered/Resolved]
  - Asthenia [Recovered/Resolved]
